FAERS Safety Report 8985481 (Version 1)
Quarter: 2012Q4

REPORT INFORMATION
  Report Type: 
  Country: KR (occurrence: KR)
  Receive Date: 20121226
  Receipt Date: 20121226
  Transmission Date: 20130627
  Serious: Yes (Other)
  Sender: FDA-Public Use
  Company Number: KR-PFIZER INC-2012323872

PATIENT
  Sex: Male

DRUGS (3)
  1. CADUET [Suspect]
     Indication: HYPERLIPIDEMIA
     Dosage: [amlodipine besilate 5 mg]/ [atorvastatin calcium 10 mg], UNK
     Route: 048
  2. CADUET [Suspect]
     Indication: HYPERTENSION
     Dosage: [amlodipine besilate 5 mg]/ [atorvastatin calcium 10 mg], UNK
     Route: 048
  3. MICARDIS [Suspect]
     Indication: HYPERTENSION
     Dosage: UNK
     Route: 048

REACTIONS (1)
  - Orthostatic hypotension [Recovered/Resolved]
